FAERS Safety Report 4824663-1 (Version None)
Quarter: 2005Q4

REPORT INFORMATION
  Report Type: 
  Country: None (occurrence: None)
  Receive Date: 20051110
  Receipt Date: 20051103
  Transmission Date: 20060501
  Serious: Yes (Other)
  Sender: FDA-Public Use
  Company Number: US-JNJFOC-20051101926

PATIENT

DRUGS (24)
  1. INFLIXIMAB [Suspect]
  2. INFLIXIMAB [Suspect]
  3. INFLIXIMAB [Suspect]
  4. INFLIXIMAB [Suspect]
  5. INFLIXIMAB [Suspect]
  6. INFLIXIMAB [Suspect]
  7. INFLIXIMAB [Suspect]
  8. INFLIXIMAB [Suspect]
  9. INFLIXIMAB [Suspect]
  10. INFLIXIMAB [Suspect]
  11. INFLIXIMAB [Suspect]
  12. INFLIXIMAB [Suspect]
  13. INFLIXIMAB [Suspect]
  14. INFLIXIMAB [Suspect]
  15. INFLIXIMAB [Suspect]
  16. INFLIXIMAB [Suspect]
  17. INFLIXIMAB [Suspect]
  18. INFLIXIMAB [Suspect]
  19. INFLIXIMAB [Suspect]
  20. INFLIXIMAB [Suspect]
  21. INFLIXIMAB [Suspect]
     Indication: CROHN'S DISEASE
  22. MESALAMINE [Concomitant]
     Indication: CROHN'S DISEASE
  23. NARCOTIC ANALGESICS [Concomitant]
     Indication: CROHN'S DISEASE
  24. PREDNISONE [Concomitant]
     Indication: CROHN'S DISEASE

REACTIONS (3)
  - DRUG EXPOSURE DURING PREGNANCY [None]
  - PREMATURE BABY [None]
  - RESPIRATORY DISORDER NEONATAL [None]
